FAERS Safety Report 22198741 (Version 1)
Quarter: 2023Q2

REPORT INFORMATION
  Report Type: Spontaneous
  Country: GB (occurrence: GB)
  Receive Date: 20230411
  Receipt Date: 20230411
  Transmission Date: 20230722
  Serious: Yes (Other)
  Sender: FDA-Public Use
  Company Number: None

PATIENT
  Age: 56 Year
  Sex: Female
  Weight: 106 kg

DRUGS (10)
  1. OMEPRAZOLE [Suspect]
     Active Substance: OMEPRAZOLE
     Indication: Product used for unknown indication
     Dosage: 40 MILLIGRAM, QD
     Route: 048
     Dates: start: 20220510
  2. ATORVASTATIN [Concomitant]
     Active Substance: ATORVASTATIN
     Dosage: AT NIGHT
     Dates: start: 20220510
  3. FLUTICASONE FUROATE [Concomitant]
     Active Substance: FLUTICASONE FUROATE
     Dosage: AS DIRECTED IN BOTH NOSTRILS IN MORNING
     Dates: start: 20220510
  4. CANDESARTAN [Concomitant]
     Active Substance: CANDESARTAN
     Dosage: 1 DOSAGE FORM, QD
     Dates: start: 20220510
  5. FELODIPINE [Concomitant]
     Active Substance: FELODIPINE
     Dosage: 1 DOSAGE FORM, QD
     Dates: start: 20220510
  6. COCODAMOL [Concomitant]
     Active Substance: ACETAMINOPHEN\CODEINE PHOSPHATE
     Dosage: 2 DOSAGE FORM, QID
     Dates: start: 20230224
  7. FLUOXETINE [Concomitant]
     Active Substance: FLUOXETINE HYDROCHLORIDE
     Dosage: 1 DOSAGE FORM, QD
     Dates: start: 20221021
  8. METFORMIN [Concomitant]
     Active Substance: METFORMIN HYDROCHLORIDE
     Dosage: 2 DOSAGE FORM, BID
     Dates: start: 20220510
  9. RANITIDINE [Concomitant]
     Active Substance: RANITIDINE
     Dosage: 1 DOSAGE FORM, BID
     Dates: start: 20230321
  10. SERETIDE [Concomitant]
     Active Substance: FLUTICASONE PROPIONATE\SALMETEROL XINAFOATE
     Dosage: 1 DOSAGE FORM, BID
     Route: 055
     Dates: start: 20220510

REACTIONS (1)
  - Lip swelling [Recovered/Resolved]
